FAERS Safety Report 20527773 (Version 1)
Quarter: 2022Q1

REPORT INFORMATION
  Report Type: Spontaneous
  Country: FR (occurrence: FR)
  Receive Date: 20220228
  Receipt Date: 20220228
  Transmission Date: 20220423
  Serious: Yes (Hospitalization)
  Sender: FDA-Public Use
  Company Number: None

PATIENT
  Age: 59 Year
  Sex: Female
  Weight: 93 kg

DRUGS (3)
  1. KETOPROFEN [Suspect]
     Active Substance: KETOPROFEN
     Indication: Back pain
     Dosage: 200 MILLIGRAM, QD
     Route: 048
     Dates: start: 20211022, end: 20211125
  2. HAWTHORN LEAF WITH FLOWER\QUININE [Suspect]
     Active Substance: HAWTHORN LEAF WITH FLOWER\QUININE
     Indication: Back pain
     Dosage: 1 DOSAGE FORM, QD
     Route: 048
     Dates: start: 20211022, end: 20211125
  3. ACETAMINOPHEN\CODEINE PHOSPHATE [Suspect]
     Active Substance: ACETAMINOPHEN\CODEINE PHOSPHATE
     Indication: Back pain
     Dosage: 1 DOSAGE FORM, QD
     Route: 048
     Dates: start: 20211022, end: 20211125

REACTIONS (1)
  - Drug reaction with eosinophilia and systemic symptoms [Recovering/Resolving]

NARRATIVE: CASE EVENT DATE: 20211114
